FAERS Safety Report 19981236 (Version 1)
Quarter: 2021Q4

REPORT INFORMATION
  Report Type: Spontaneous
  Country: FR (occurrence: FR)
  Receive Date: 20211022
  Receipt Date: 20211022
  Transmission Date: 20220304
  Serious: Yes (Other)
  Sender: FDA-Public Use
  Company Number: FR-AUROBINDO-AUR-APL-2021-043048

PATIENT
  Age: 90 Year
  Sex: Female

DRUGS (2)
  1. AZITHROMYCIN [Suspect]
     Active Substance: AZITHROMYCIN
     Indication: Tooth abscess
     Dosage: 500 MILLIGRAM, ONCE A DAY
     Route: 048
     Dates: start: 202110
  2. SOTALOL [Suspect]
     Active Substance: SOTALOL
     Indication: Hypertension
     Dosage: 40 MILLIGRAM
     Route: 048

REACTIONS (4)
  - Hypertension [Unknown]
  - Diarrhoea [Unknown]
  - Heart rate increased [Unknown]
  - Intentional product misuse [Unknown]
